FAERS Safety Report 9380393 (Version 1)
Quarter: 2013Q2

REPORT INFORMATION
  Report Type: Spontaneous
  Country: US (occurrence: None)
  Receive Date: 20130628
  Receipt Date: 20130628
  Transmission Date: 20140414
  Serious: Yes (Death)
  Sender: FDA-Public Use
  Company Number: AXC-2013-000270

PATIENT
  Age: 2 Year
  Sex: Female

DRUGS (2)
  1. ZENPEP [Suspect]
     Indication: PRODUCT USED FOR UNKNOWN INDICATION
  2. SOURCECF [Suspect]
     Indication: PRODUCT USED FOR UNKNOWN INDICATION

REACTIONS (1)
  - Death [None]
